FAERS Safety Report 7030772-1 (Version None)
Quarter: 2010Q4

REPORT INFORMATION
  Report Type: 
  Country: None (occurrence: None)
  Receive Date: 20101006
  Receipt Date: 20100922
  Transmission Date: 20110411
  Serious: Yes (Other)
  Sender: FDA-Public Use
  Company Number: GB-GENENTECH-305621

PATIENT
  Sex: Male

DRUGS (2)
  1. XOLAIR [Suspect]
     Indication: ASTHMA
     Dosage: 375 MG, UNK
     Route: 042
  2. STEROIDS NOS [Concomitant]
     Indication: ASTHMA

REACTIONS (2)
  - IMMUNODEFICIENCY [None]
  - OSTEOMYELITIS [None]
